FAERS Safety Report 23663650 (Version 1)
Quarter: 2024Q1

REPORT INFORMATION
  Report Type: Report from Study
  Country: CO (occurrence: CO)
  Receive Date: 20240322
  Receipt Date: 20240322
  Transmission Date: 20240409
  Serious: Yes (Hospitalization)
  Sender: FDA-Public Use
  Company Number: CO-002147023-NVSC2024CO056232

PATIENT
  Age: 68 Year
  Sex: Male
  Weight: 80 kg

DRUGS (1)
  1. AFINITOR [Suspect]
     Active Substance: EVEROLIMUS
     Indication: Renal cell carcinoma
     Dosage: 10 MG, QD
     Route: 048
     Dates: start: 20240208

REACTIONS (3)
  - Inflammation [Unknown]
  - Eye pain [Unknown]
  - Insomnia [Unknown]

NARRATIVE: CASE EVENT DATE: 20240301
